FAERS Safety Report 7364425-7 (Version None)
Quarter: 2011Q1

REPORT INFORMATION
  Report Type: 
  Country: None (occurrence: None)
  Receive Date: 20110321
  Receipt Date: 20110315
  Transmission Date: 20110831
  Serious: Yes (Hospitalization)
  Sender: FDA-Public Use
  Company Number: JP-BAYER-201013603BYL

PATIENT
  Sex: Male

DRUGS (5)
  1. BARACLUDE [Concomitant]
     Indication: HEPATITIS B
     Dosage: 0.5 MG (DAILY DOSE), , ORAL
     Route: 048
     Dates: start: 20100301
  2. NEXAVAR [Suspect]
     Route: 048
     Dates: start: 20100806, end: 20100915
  3. DIOVAN [Concomitant]
     Indication: HYPERTENSION
     Dosage: 80 MG (DAILY DOSE), , ORAL
     Route: 048
  4. AMLODIPINE [Concomitant]
     Indication: HYPERTENSION
     Dosage: 5 MG (DAILY DOSE), , ORAL
     Route: 048
  5. NEXAVAR [Suspect]
     Indication: HEPATIC NEOPLASM MALIGNANT
     Dosage: 400 MG, QD
     Route: 048
     Dates: start: 20100705, end: 20100815

REACTIONS (5)
  - ASPARTATE AMINOTRANSFERASE INCREASED [None]
  - BLOOD ALKALINE PHOSPHATASE INCREASED [None]
  - HEPATIC FUNCTION ABNORMAL [None]
  - PALMAR-PLANTAR ERYTHRODYSAESTHESIA SYNDROME [None]
  - ALANINE AMINOTRANSFERASE INCREASED [None]
